FAERS Safety Report 10253699 (Version 1)
Quarter: 2014Q2

REPORT INFORMATION
  Report Type: Spontaneous
  Country: CN (occurrence: CN)
  Receive Date: 20140623
  Receipt Date: 20140623
  Transmission Date: 20141212
  Serious: Yes (Other)
  Sender: FDA-Public Use
  Company Number: CN-BAXTER-2014BAX031351

PATIENT
  Age: 66 Year
  Sex: Female
  Weight: 55 kg

DRUGS (3)
  1. 10% GLUCOSE  INJECTION [Suspect]
     Indication: NUTRITIONAL SUPPLEMENTATION
     Dates: start: 20130321, end: 20130321
  2. MEDIUM AND LONG CHAIN FAT EMULSION INJECTION (C8-24) 20% [Suspect]
     Indication: NUTRITIONAL SUPPLEMENTATION
     Route: 041
     Dates: start: 20130321, end: 20130321
  3. 10% POTASSIUM CHLORIDE [Suspect]
     Indication: NUTRITIONAL SUPPLEMENTATION
     Dates: start: 20130321, end: 20130321

REACTIONS (5)
  - Hot flush [Recovering/Resolving]
  - Chills [Recovering/Resolving]
  - Hyperpyrexia [Recovering/Resolving]
  - Blood pressure increased [None]
  - Infusion related reaction [None]
